FAERS Safety Report 9914797 (Version 1)
Quarter: 2014Q1

REPORT INFORMATION
  Report Type: Not Available
  Country: US (occurrence: US)
  Receive Date: 20140220
  Receipt Date: 20140220
  Transmission Date: 20141002
  Serious: No
  Sender: FDA-Public Use
  Company Number: US-VIVUS-2013V1000830

PATIENT
  Age: 66 Year
  Sex: Female
  Weight: 79 kg

DRUGS (3)
  1. QSYMIA [Suspect]
     Indication: WEIGHT DECREASED
     Route: 048
     Dates: start: 2013, end: 2013
  2. LOSARTAN [Concomitant]
     Indication: HYPERTENSION
     Dosage: 50MG/12.5MG
     Route: 048
     Dates: start: 2007
  3. GENERIC XALATAN [Concomitant]
     Indication: GLAUCOMA
     Dosage: 1 DROP AT BEDTIME/BOTH EYES
     Route: 047
     Dates: start: 2003

REACTIONS (3)
  - Eye swelling [Recovered/Resolved]
  - Headache [Recovered/Resolved]
  - Drug prescribing error [Recovered/Resolved]
